FAERS Safety Report 20783087 (Version 1)
Quarter: 2022Q2

REPORT INFORMATION
  Report Type: Other
  Country: US (occurrence: None)
  Receive Date: 20220504
  Receipt Date: 20220504
  Transmission Date: 20220720
  Serious: Yes (Death)
  Sender: FDA-Public Use
  Company Number: US-ROCHE-3084432

PATIENT
  Age: 61 Year
  Sex: Female

DRUGS (1)
  1. OCREVUS [Suspect]
     Active Substance: OCRELIZUMAB
     Indication: Relapsing-remitting multiple sclerosis
     Dosage: DAY 1 AND DAY 14 THEN 600 MG EVERY 6 MONTHHS
     Route: 065

REACTIONS (2)
  - COVID-19 [Fatal]
  - Illness [Fatal]

NARRATIVE: CASE EVENT DATE: 20220102
